FAERS Safety Report 16236760 (Version 1)
Quarter: 2019Q2

REPORT INFORMATION
  Report Type: Spontaneous
  Country: US (occurrence: US)
  Receive Date: 20190425
  Receipt Date: 20190425
  Transmission Date: 20190711
  Serious: Yes (Other)
  Sender: FDA-Public Use
  Company Number: US-TEVA-2019-US-1041315

PATIENT
  Age: 52 Year
  Sex: Female

DRUGS (7)
  1. VANCOMYCIN [Suspect]
     Active Substance: VANCOMYCIN
     Indication: ENTEROBACTER BACTERAEMIA
     Route: 065
  2. MELPHALAN HYDROCHLORIDE. [Suspect]
     Active Substance: MELPHALAN HYDROCHLORIDE
     Route: 065
  3. DEXAMETHASONE. [Concomitant]
     Active Substance: DEXAMETHASONE
     Indication: PLASMA CELL MYELOMA
     Route: 065
  4. FILGRASTIM [Concomitant]
     Active Substance: FILGRASTIM
     Route: 065
  5. CYCLOPHOSPHAMIDE. [Suspect]
     Active Substance: CYCLOPHOSPHAMIDE
     Indication: PLASMA CELL MYELOMA
     Route: 065
  6. BORTEZOMIB. [Concomitant]
     Active Substance: BORTEZOMIB
     Indication: PLASMA CELL MYELOMA
     Route: 065
  7. COLISTIN [Concomitant]
     Active Substance: COLISTIN
     Indication: ENTEROBACTER BACTERAEMIA
     Route: 065

REACTIONS (1)
  - Venoocclusive liver disease [Recovered/Resolved]
